FAERS Safety Report 22249671 (Version 1)
Quarter: 2023Q2

REPORT INFORMATION
  Report Type: Spontaneous
  Country: US (occurrence: None)
  Receive Date: 20230421
  Receipt Date: 20230421
  Transmission Date: 20230721
  Serious: Yes (Death, Hospitalization)
  Sender: FDA-Public Use
  Company Number: None

PATIENT
  Age: 83 Year
  Sex: Male

DRUGS (16)
  1. PIRFENIDONE [Suspect]
     Active Substance: PIRFENIDONE
     Indication: Idiopathic pulmonary fibrosis
     Dosage: FREQUENCY : 3 TIMES A DAY;?
     Route: 048
     Dates: start: 20190205, end: 20221218
  2. ALBUTEROL SULFATE [Concomitant]
     Active Substance: ALBUTEROL SULFATE
  3. PREDNISONE [Concomitant]
     Active Substance: PREDNISONE
  4. morphine concentrate [Concomitant]
  5. LORAZEPAM [Concomitant]
     Active Substance: LORAZEPAM
  6. PHENOBARBITAL [Concomitant]
  7. ACETAMINOPHEN [Concomitant]
     Active Substance: ACETAMINOPHEN
  8. BISACODYL [Concomitant]
     Active Substance: BISACODYL
  9. atropine opht drop [Concomitant]
  10. HALOPERIDOL [Concomitant]
  11. MIRTAZAPINE [Concomitant]
  12. DOCUSATE SODIUM [Concomitant]
  13. MIRALAX [Concomitant]
     Active Substance: POLYETHYLENE GLYCOL 3350
  14. PANTOPRAZOLE [Concomitant]
  15. MAGNESIUM CITRATE [Concomitant]
  16. ATROVENT [Concomitant]
     Active Substance: IPRATROPIUM BROMIDE

REACTIONS (4)
  - Hypoxia [None]
  - Pulmonary fibrosis [None]
  - Pneumomediastinum [None]
  - Disease progression [None]

NARRATIVE: CASE EVENT DATE: 20221210
